FAERS Safety Report 9199768 (Version 1)
Quarter: 2013Q1

REPORT INFORMATION
  Report Type: Spontaneous
  Country: US (occurrence: None)
  Receive Date: 20130328
  Receipt Date: 20130328
  Transmission Date: 20140127
  Serious: Yes (Other)
  Sender: FDA-Public Use
  Company Number: None

PATIENT
  Age: 70 Year
  Sex: Female
  Weight: 72.58 kg

DRUGS (1)
  1. METOCLOPRAMIDE [Suspect]
     Indication: NAUSEA
     Dosage: 1 TABLET, 4 TIMES DAILY PO
     Route: 048
     Dates: start: 20121120, end: 20121215

REACTIONS (2)
  - Oral mucosal blistering [None]
  - Parkinsonism [None]
